FAERS Safety Report 6211350-0 (Version None)
Quarter: 2009Q2

REPORT INFORMATION
  Report Type: 
  Country: None (occurrence: None)
  Receive Date: 20090522
  Receipt Date: 20090417
  Transmission Date: 20091009
  Serious: No
  Sender: FDA-Public Use
  Company Number: 8044974

PATIENT
  Age: 47 Year
  Sex: Male
  Weight: 93.1 kg

DRUGS (5)
  1. CIMZIA [Suspect]
     Indication: CROHN'S DISEASE
     Dosage: 400 MG SC
     Route: 058
     Dates: start: 20090101
  2. LYRICA [Concomitant]
  3. CYMBALTA [Concomitant]
  4. CHLORPHENIRAMINE MALEATE [Concomitant]
  5. IBUPROFEN [Concomitant]

REACTIONS (4)
  - ACNE [None]
  - BLISTER [None]
  - BURNING SENSATION [None]
  - RASH [None]
